FAERS Safety Report 4445845-7 (Version None)
Quarter: 2004Q3

REPORT INFORMATION
  Report Type: 
  Country: None (occurrence: None)
  Receive Date: 20040903
  Receipt Date: 20040826
  Transmission Date: 20050211
  Serious: No
  Sender: FDA-Public Use
  Company Number: 2004UW18156

PATIENT
  Age: 46 Year
  Sex: Female
  Weight: 115.4404 kg

DRUGS (5)
  1. SEROQUEL [Suspect]
     Indication: SUICIDAL IDEATION
     Dates: start: 20040614, end: 20040820
  2. LITHIUM [Concomitant]
  3. TEGRETOL [Concomitant]
  4. PROVIGIL [Concomitant]
  5. NEURONTIN [Concomitant]

REACTIONS (3)
  - DROOLING [None]
  - SPEECH DISORDER [None]
  - TONGUE DISORDER [None]
